FAERS Safety Report 24716908 (Version 4)
Quarter: 2025Q3

REPORT INFORMATION
  Report Type: Spontaneous
  Country: EU (occurrence: EU)
  Receive Date: 20241210
  Receipt Date: 20250918
  Transmission Date: 20251021
  Serious: Yes (Death)
  Sender: PFIZER
  Company Number: EU-PFIZER INC-202400316903

PATIENT
  Age: 88 Year
  Sex: Female

DRUGS (1)
  1. MEDROL [Suspect]
     Active Substance: METHYLPREDNISOLONE
     Route: 048

REACTIONS (2)
  - Death [Fatal]
  - Intentional product misuse [Unknown]
